FAERS Safety Report 5605341-8 (Version None)
Quarter: 2008Q1

REPORT INFORMATION
  Report Type: 
  Country: None (occurrence: None)
  Receive Date: 20080129
  Receipt Date: 20080117
  Transmission Date: 20080703
  Serious: Yes (Other)
  Sender: FDA-Public Use
  Company Number: US-PFIZER INC-2008006290

PATIENT
  Sex: Male
  Weight: 203.18 kg

DRUGS (5)
  1. LIPITOR [Suspect]
     Indication: BLOOD CHOLESTEROL INCREASED
     Dosage: TEXT:EVERY DAY
     Route: 048
  2. BENAZEPRIL HYDROCHLORIDE [Concomitant]
  3. ALL OTHER THERAPEUTIC PRODUCTS [Concomitant]
  4. VERAMYST [Concomitant]
  5. TESTOSTERONE [Concomitant]

REACTIONS (4)
  - GLOSSODYNIA [None]
  - SWOLLEN TONGUE [None]
  - TONGUE DISORDER [None]
  - TONGUE INJURY [None]
